FAERS Safety Report 4934027-8 (Version None)
Quarter: 2006Q1

REPORT INFORMATION
  Report Type: 
  Country: None (occurrence: None)
  Receive Date: 20060303
  Receipt Date: 20060222
  Transmission Date: 20060701
  Serious: Yes (Other)
  Sender: FDA-Public Use
  Company Number: BEWYE274804JAN06

PATIENT
  Age: 65 Year
  Sex: Female

DRUGS (5)
  1. EFFEXOR [Suspect]
     Indication: DEPRESSION
     Dosage: 37.5 MG / DAY ORAL
     Route: 048
     Dates: start: 19980101, end: 20051122
  2. EFFEXOR [Suspect]
     Indication: DEPRESSION
     Dosage: 37.5 MG / DAY ORAL
     Route: 048
     Dates: start: 20051128
  3. PAROXETINE HCL [Concomitant]
  4. VISKALDIX (CLOPAMIDE/PINDOLOL) [Concomitant]
  5. FENOFIBRATE [Concomitant]

REACTIONS (4)
  - ANXIETY [None]
  - DRUG WITHDRAWAL SYNDROME [None]
  - HYPERTENSION [None]
  - VERTIGO [None]
